FAERS Safety Report 24951950 (Version 2)
Quarter: 2025Q1

REPORT INFORMATION
  Report Type: Report from Study
  Country: US (occurrence: US)
  Receive Date: 20250210
  Receipt Date: 20250304
  Transmission Date: 20250408
  Serious: Yes (Other)
  Sender: ALEXION PHARMACEUTICALS
  Company Number: US-AstraZeneca-CH-00800985A

PATIENT

DRUGS (1)
  1. SOLIRIS [Suspect]
     Active Substance: ECULIZUMAB
     Route: 065

REACTIONS (5)
  - Spinal fracture [Unknown]
  - Vitamin D decreased [Unknown]
  - Blood calcium decreased [Unknown]
  - Fatigue [Unknown]
  - Osteoporosis [Unknown]
